FAERS Safety Report 7020788-3 (Version None)
Quarter: 2010Q3

REPORT INFORMATION
  Report Type: 
  Country: None (occurrence: None)
  Receive Date: 20100929
  Receipt Date: 20100921
  Transmission Date: 20110219
  Serious: Yes (Other)
  Sender: FDA-Public Use
  Company Number: IE-PFIZER INC-2010119341

PATIENT
  Age: 44 Year
  Sex: Male

DRUGS (2)
  1. CHAMPIX [Suspect]
     Dosage: 0.5 MG, UNK
     Route: 048
     Dates: start: 20100614, end: 20100624
  2. ZOTON [Concomitant]
     Dosage: 30 MG, UNK

REACTIONS (4)
  - ANXIETY [None]
  - FATIGUE [None]
  - NIGHT SWEATS [None]
  - NIGHTMARE [None]
